FAERS Safety Report 5247190-9 (Version None)
Quarter: 2007Q1

REPORT INFORMATION
  Report Type: 
  Country: None (occurrence: None)
  Receive Date: 20070221
  Receipt Date: 20070209
  Transmission Date: 20070707
  Serious: Yes (Other)
  Sender: FDA-Public Use
  Company Number: GXKR2007US01587

PATIENT
  Age: 35 Year
  Sex: Male

DRUGS (3)
  1. SERTRALINE [Suspect]
     Indication: DEPRESSION
  2. BUPROPION HCL [Suspect]
     Indication: DEPRESSION
  3. VENLAFAXINE (NGX)(VENLAFAXINE) [Suspect]
     Indication: DEPRESSION

REACTIONS (3)
  - AZOOSPERMIA [None]
  - INFERTILITY MALE [None]
  - SPERMATOZOA PROGRESSIVE MOTILITY DECREASED [None]
